FAERS Safety Report 19885083 (Version 1)
Quarter: 2021Q3

REPORT INFORMATION
  Report Type: Spontaneous
  Country: AT (occurrence: FR)
  Receive Date: 20210927
  Receipt Date: 20210927
  Transmission Date: 20211014
  Serious: Yes (Death, Other)
  Sender: FDA-Public Use
  Company Number: FR-BRISTOL-MYERS SQUIBB COMPANY-BMS-2021-094451

PATIENT

DRUGS (1)
  1. IPILIMUMAB [Suspect]
     Active Substance: IPILIMUMAB
     Indication: MALIGNANT MELANOMA
     Dosage: UNK
     Route: 065

REACTIONS (3)
  - Respiratory failure [Fatal]
  - Immune-mediated hypophysitis [Unknown]
  - Muscular weakness [Unknown]
